FAERS Safety Report 15745407 (Version 7)
Quarter: 2020Q3

REPORT INFORMATION
  Report Type: Report from Study
  Country: US (occurrence: US)
  Receive Date: 20181220
  Receipt Date: 20200721
  Transmission Date: 20201102
  Serious: No
  Sender: FDA-Public Use
  Company Number: PHEH2018US052882

PATIENT
  Age: 48 Year
  Sex: Male

DRUGS (1)
  1. GILENYA [Suspect]
     Active Substance: FINGOLIMOD HYDROCHLORIDE
     Indication: MULTIPLE SCLEROSIS
     Dosage: 0.5 MG, QD
     Route: 048
     Dates: start: 2013

REACTIONS (11)
  - Confusional state [Unknown]
  - Cough [Unknown]
  - Stress [Unknown]
  - Pruritus [Unknown]
  - Anxiety [Unknown]
  - Feeling abnormal [Unknown]
  - Sinus headache [Unknown]
  - Frustration tolerance decreased [Unknown]
  - Weight increased [Unknown]
  - Nasopharyngitis [Unknown]
  - Asthenia [Unknown]

NARRATIVE: CASE EVENT DATE: 20191107
